FAERS Safety Report 13959221 (Version 1)
Quarter: 2017Q3

REPORT INFORMATION
  Report Type: Report from Study
  Country: None (occurrence: AT)
  Receive Date: 20170912
  Receipt Date: 20170912
  Transmission Date: 20171128
  Serious: Yes (Hospitalization)
  Sender: FDA-Public Use
  Company Number: AT-ABBVIE-17K-009-2099118-00

PATIENT
  Age: 58 Year
  Sex: Male

DRUGS (3)
  1. MENCORD [Concomitant]
     Indication: PRODUCT USED FOR UNKNOWN INDICATION
  2. DOLORMIN [Concomitant]
     Active Substance: IBUPROFEN
     Indication: PRODUCT USED FOR UNKNOWN INDICATION
  3. HUMIRA [Suspect]
     Active Substance: ADALIMUMAB
     Indication: ANKYLOSING SPONDYLITIS
     Route: 058
     Dates: start: 20150831

REACTIONS (1)
  - Sleep apnoea syndrome [Recovered/Resolved]

NARRATIVE: CASE EVENT DATE: 201707
